FAERS Safety Report 9821775 (Version 3)
Quarter: 2014Q1

REPORT INFORMATION
  Report Type: Spontaneous
  Country: IT (occurrence: IT)
  Receive Date: 20140116
  Receipt Date: 20140320
  Transmission Date: 20141002
  Serious: Yes (Death, Other)
  Sender: FDA-Public Use
  Company Number: IT-PFIZER INC-2014012857

PATIENT
  Age: 79 Year
  Sex: Female

DRUGS (8)
  1. CORDARONE [Suspect]
     Indication: CARDIAC FAILURE
     Dosage: 1 DF, DAILY
     Route: 048
     Dates: start: 20131030, end: 20131203
  2. BISOPROLOL HEMIFUMARATE [Concomitant]
     Dosage: UNK
  3. COUMADIN [Concomitant]
     Dosage: UNK
  4. PRITORPLUS [Concomitant]
     Dosage: UNK
  5. TOTALIP [Concomitant]
     Dosage: UNK
  6. FEMARA [Concomitant]
     Dosage: UNK
  7. LASIX [Concomitant]
     Dosage: UNK
  8. KCL-RETARD [Concomitant]
     Dosage: UNK

REACTIONS (5)
  - Renal failure acute [Fatal]
  - Hypertransaminasaemia [Fatal]
  - Multi-organ failure [Fatal]
  - Cardiogenic shock [Fatal]
  - Hypocoagulable state [Unknown]
